FAERS Safety Report 6327862-5 (Version None)
Quarter: 2009Q3

REPORT INFORMATION
  Report Type: 
  Country: None (occurrence: None)
  Receive Date: 20090824
  Receipt Date: 20090818
  Transmission Date: 20100115
  Serious: Yes (Life-Threatening, Hospitalization)
  Sender: FDA-Public Use
  Company Number: GXKR2009DE09329

PATIENT
  Age: 66 Year
  Sex: Male
  Weight: 120 kg

DRUGS (8)
  1. ACETYLSALICYLIC ACID (NGX) (ACETYLSALICYLIC ACID) TABLET, 100MG [Suspect]
     Indication: CORONARY ARTERY DISEASE
     Dosage: 100 MG, QD, ORAL
     Route: 048
     Dates: start: 20040101, end: 20090623
  2. AZATHIOPRINE [Suspect]
     Indication: PEMPHIGOID
     Dosage: 75 MG, QD, ORAL
     Route: 048
     Dates: start: 20090603, end: 20090623
  3. CELEBREX [Suspect]
     Indication: OSTEOARTHRITIS
     Dosage: 200 MG, QD, ORAL
     Route: 048
     Dates: start: 20080101, end: 20090623
  4. CARVEDILOL [Concomitant]
  5. FLUVASTATIN [Concomitant]
  6. KARVEZIDE (HYDROCHLOROTHIAZIDE, IBESARTAN) [Concomitant]
  7. PANTOPRAZOLE SODIUM [Concomitant]
  8. PREDNISOLONE [Concomitant]

REACTIONS (1)
  - RENAL FAILURE ACUTE [None]
